FAERS Safety Report 19599884 (Version 1)
Quarter: 2021Q3

REPORT INFORMATION
  Report Type: Spontaneous
  Country: JP (occurrence: JP)
  Receive Date: 20210722
  Receipt Date: 20210722
  Transmission Date: 20211014
  Serious: Yes (Death)
  Sender: FDA-Public Use
  Company Number: JP-PFIZER INC-2021863186

PATIENT
  Age: 9 Decade
  Sex: Female

DRUGS (1)
  1. METHOTREXATE SODIUM. [Suspect]
     Active Substance: METHOTREXATE SODIUM
     Dosage: AT 6 MG OR 8 MG, DAILY
     Route: 048

REACTIONS (2)
  - Decreased immune responsiveness [Fatal]
  - Off label use [Fatal]
